FAERS Safety Report 8612524-1 (Version None)
Quarter: 2012Q3

REPORT INFORMATION
  Report Type: 
  Country: None (occurrence: None)
  Receive Date: 20120822
  Receipt Date: 20111003
  Transmission Date: 20120928
  Serious: No
  Sender: FDA-Public Use
  Company Number: US-ASTRAZENECA-2011SE59594

PATIENT
  Sex: Female

DRUGS (1)
  1. SYMBICORT [Suspect]
     Dosage: UNKNOWN FREQUENCY
     Route: 055

REACTIONS (8)
  - PYREXIA [None]
  - TREMOR [None]
  - ASTHENIA [None]
  - ABASIA [None]
  - OROPHARYNGEAL PAIN [None]
  - HEADACHE [None]
  - NAUSEA [None]
  - ORAL DISCOMFORT [None]
